FAERS Safety Report 4418078-8 (Version None)
Quarter: 2004Q3

REPORT INFORMATION
  Report Type: 
  Country: None (occurrence: None)
  Receive Date: 20040803
  Receipt Date: 20040722
  Transmission Date: 20050211
  Serious: Yes (Hospitalization)
  Sender: FDA-Public Use
  Company Number: 2004SE04186

PATIENT
  Age: 86 Year
  Sex: Female
  Weight: 48 kg

DRUGS (10)
  1. BLOPRESS [Suspect]
     Indication: ESSENTIAL HYPERTENSION
     Dosage: 8 MG QD PO
     Route: 048
     Dates: start: 20040510, end: 20040617
  2. BEZAFIBRATE [Concomitant]
  3. DOXAZOSIN MESYLATE [Concomitant]
  4. NIFEDIPINE [Concomitant]
  5. FUROSEMIDE [Concomitant]
  6. ENALAPRIL MALEATE [Concomitant]
  7. BUNAZOSIN HYDROCHLORIDE [Concomitant]
  8. NIFEDIPINE [Concomitant]
  9. REBAMIPIDE [Concomitant]
  10. CILOSTAZOL [Concomitant]

REACTIONS (4)
  - NEPHROSCLEROSIS [None]
  - OEDEMA PERIPHERAL [None]
  - RENAL IMPAIRMENT [None]
  - RHABDOMYOLYSIS [None]
